FAERS Safety Report 4478120-5 (Version None)
Quarter: 2004Q4

REPORT INFORMATION
  Report Type: 
  Country: None (occurrence: None)
  Receive Date: 20041018
  Receipt Date: 20041018
  Transmission Date: 20050328
  Serious: Yes (Hospitalization)
  Sender: FDA-Public Use
  Company Number: None

PATIENT
  Age: 52 Year
  Sex: Male
  Weight: 100.2449 kg

DRUGS (7)
  1. LEVOFLOXACIN [Suspect]
     Indication: PANCREATITIS ACUTE
     Dosage: ONCE DAILY ORAL
     Route: 048
     Dates: start: 20040914, end: 20040920
  2. OMEPRAZOLE [Suspect]
     Dosage: ONCE DAILY ORAL
     Route: 048
     Dates: start: 20040914, end: 20040920
  3. PROCALAMINE [Concomitant]
  4. LIPIDS [Concomitant]
  5. PEPCID [Concomitant]
  6. DILAUDID [Concomitant]
  7. IMIPENUM [Concomitant]

REACTIONS (2)
  - DRUG HYPERSENSITIVITY [None]
  - TOXIC EPIDERMAL NECROLYSIS [None]
